FAERS Safety Report 16498092 (Version 5)
Quarter: 2020Q3

REPORT INFORMATION
  Report Type: Report from Study
  Country: MX (occurrence: MX)
  Receive Date: 20190628
  Receipt Date: 20200910
  Transmission Date: 20201102
  Serious: Yes (Other)
  Sender: FDA-Public Use
  Company Number: PHHY2019MX149445

PATIENT
  Age: 56 Year
  Sex: Male
  Weight: 53 kg

DRUGS (6)
  1. TEGRETOL [Suspect]
     Active Substance: CARBAMAZEPINE
     Indication: EPILEPSY
     Dosage: 1 DF, BID (IN THE MORNING AND AT NIGHT)
     Route: 048
  2. CARBAMAZEPINE. [Concomitant]
     Active Substance: CARBAMAZEPINE
     Indication: EPILEPSY
     Dosage: 1 DF, BID (AT 9 AM IN THE MORNING AND AT 10 PM AT NIGHT)
     Route: 048
  3. TEGRETOL [Suspect]
     Active Substance: CARBAMAZEPINE
     Dosage: 1 DF, BID (IN THE MORNING AND AT NIGHT)
     Route: 048
  4. LEVETIRACETAM. [Suspect]
     Active Substance: LEVETIRACETAM
     Indication: EPILEPSY
     Dosage: 1 DF, QD (AT 8 AM IN THE MORNING)
     Route: 048
  5. LEVETIRACETAM. [Suspect]
     Active Substance: LEVETIRACETAM
     Indication: SEIZURE
  6. TEGRETOL [Suspect]
     Active Substance: CARBAMAZEPINE
     Dosage: 2 DF, BID
     Route: 048

REACTIONS (14)
  - Fall [Unknown]
  - Head injury [Unknown]
  - Cerebral disorder [Unknown]
  - Diarrhoea [Not Recovered/Not Resolved]
  - Speech disorder [Not Recovered/Not Resolved]
  - Seizure [Not Recovered/Not Resolved]
  - Joint injury [Unknown]
  - Infrequent bowel movements [Unknown]
  - Abdominal discomfort [Recovering/Resolving]
  - Pyrexia [Recovering/Resolving]
  - Constipation [Not Recovered/Not Resolved]
  - Weight decreased [Unknown]
  - Intellectual disability [Unknown]
  - Gait disturbance [Unknown]

NARRATIVE: CASE EVENT DATE: 201811
